FAERS Safety Report 26107217 (Version 1)
Quarter: 2025Q4

REPORT INFORMATION
  Report Type: Spontaneous
  Country: US (occurrence: None)
  Receive Date: 20251126
  Receipt Date: 20251126
  Transmission Date: 20260118
  Serious: No
  Sender: FDA-CTU
  Company Number: None

PATIENT
  Age: 63 Year
  Sex: Female
  Weight: 64.8 kg

DRUGS (16)
  1. TYMLOS [Suspect]
     Active Substance: ABALOPARATIDE
     Indication: Osteoporosis
     Dosage: OTHER QUANTITY : 1 INJECTION(S);?FREQUENCY : DAILY;?
     Route: 030
     Dates: start: 20240711, end: 20251108
  2. SERTRALINE [Concomitant]
     Active Substance: SERTRALINE HYDROCHLORIDE
  3. skyrizi 180mg/OBI [Concomitant]
  4. FOLIC ACID [Concomitant]
     Active Substance: FOLIC ACID
  5. METHOTREXATE [Concomitant]
     Active Substance: METHOTREXATE
  6. DIETARY SUPPLEMENT [Concomitant]
     Active Substance: DIETARY SUPPLEMENT
  7. ADEMETIONINE [Concomitant]
     Active Substance: ADEMETIONINE
  8. magnesium 400 mg [Concomitant]
  9. Pepcid 20mg [Concomitant]
  10. Glucosamine 1500mg/ Chondroitin 1200 mg [Concomitant]
  11. Vit D3 4,000 IU [Concomitant]
  12. Calcium 600 mg w/Vit D3 400 IU [Concomitant]
  13. Calcium 600mg [Concomitant]
  14. Acacia powder, 2 tsp/2x day [Concomitant]
  15. Flaxseed Oil 1000 mg [Concomitant]
  16. Tylenol 1000mg 2-3x/day [Concomitant]

REACTIONS (12)
  - Bone pain [None]
  - Arthralgia [None]
  - Pain in extremity [None]
  - Restless legs syndrome [None]
  - Insomnia [None]
  - Pain in extremity [None]
  - Pain in jaw [None]
  - Pain [None]
  - Tendon pain [None]
  - Therapy cessation [None]
  - Headache [None]
  - Family stress [None]

NARRATIVE: CASE EVENT DATE: 20250125
